FAERS Safety Report 8986335 (Version 1)
Quarter: 2012Q4

REPORT INFORMATION
  Report Type: Spontaneous
  Country: US (occurrence: None)
  Receive Date: 20121219
  Receipt Date: 20121219
  Transmission Date: 20130627
  Serious: Yes (Life-Threatening)
  Sender: FDA-Public Use
  Company Number: None

PATIENT
  Sex: Female

DRUGS (4)
  1. PEG-INTRON [Suspect]
     Indication: HEPATITIS C
     Dosage: 150mcg Qweek Subcutaneous
Start date and Lot # are partially illegible
     Route: 058
     Dates: end: 201211
  2. RIBAVIRIN [Suspect]
     Indication: HEPATITIS C
     Dosage: 400mg BID PO
Start Date and Lot # ^Partially Illegible^
     Route: 048
     Dates: end: 201211
  3. CYMBALTA [Concomitant]
  4. INCIVEK [Concomitant]

REACTIONS (3)
  - Suicide attempt [None]
  - Depression [None]
  - Incorrect dose administered [None]
